FAERS Safety Report 8429141-9 (Version None)
Quarter: 2012Q2

REPORT INFORMATION
  Report Type: 
  Country: None (occurrence: None)
  Receive Date: 20120612
  Receipt Date: 20120604
  Transmission Date: 20120825
  Serious: Yes (Hospitalization, Other)
  Sender: FDA-Public Use
  Company Number: US-BAYER-2012-039229

PATIENT
  Age: 40 Year
  Sex: Female

DRUGS (5)
  1. DROSPIRENONE AND ETHINYL ESTRADIOL [Suspect]
  2. RISPERADOL CONSTA [Concomitant]
     Dosage: 50 MG, Q2WK
     Dates: start: 20090507
  3. YASMIN [Suspect]
     Indication: CONTRACEPTION
  4. YAZ [Suspect]
     Dosage: UNK
  5. COGENTIN [Concomitant]
     Dosage: UNK
     Dates: start: 20090501

REACTIONS (4)
  - PULMONARY EMBOLISM [None]
  - INJURY [None]
  - PAIN [None]
  - CORONARY ARTERY THROMBOSIS [None]
